FAERS Safety Report 8136147-6 (Version None)
Quarter: 2012Q1

REPORT INFORMATION
  Report Type: 
  Country: None (occurrence: None)
  Receive Date: 20120214
  Receipt Date: 20120207
  Transmission Date: 20120608
  Serious: Yes (Other)
  Sender: FDA-Public Use
  Company Number: PHHY2012GB010212

PATIENT
  Age: 80 Year

DRUGS (8)
  1. RAMIPRIL [Suspect]
     Indication: HYPERTENSION
     Dosage: 1.25 MG, QD
     Route: 048
     Dates: start: 20120124
  2. DOUBLEBASE [Concomitant]
  3. LATANOPROST [Concomitant]
     Indication: GLAUCOMA
  4. TAMSULOSIN HCL [Concomitant]
     Dosage: 400 UG, QD
  5. FINASTERIDE [Concomitant]
     Dosage: 5 MG, QD
  6. WARFARIN SODIUM [Concomitant]
  7. LAMOTRIGINE [Suspect]
     Indication: EPILEPSY
     Dosage: 25 MG, QD
  8. LEVOTHYROXINE SODIUM [Concomitant]
     Dosage: 25 UG, QD
     Dates: start: 20120125

REACTIONS (3)
  - HAEMOGLOBIN DECREASED [None]
  - WHITE BLOOD CELL COUNT DECREASED [None]
  - MYELODYSPLASTIC SYNDROME [None]
